FAERS Safety Report 5803328-3 (Version None)
Quarter: 2008Q3

REPORT INFORMATION
  Report Type: 
  Country: None (occurrence: None)
  Receive Date: 20080708
  Receipt Date: 20080630
  Transmission Date: 20090109
  Serious: Yes (Hospitalization)
  Sender: FDA-Public Use
  Company Number: JP-AVENTIS-200814634GDDC

PATIENT
  Age: 46 Year
  Sex: Female

DRUGS (4)
  1. RIFAMPICIN [Suspect]
     Indication: TUBERCULOSIS
  2. ISCOTIN                            /00030201/ [Suspect]
     Indication: TUBERCULOSIS
  3. PYRAMIDE [Suspect]
     Indication: TUBERCULOSIS
  4. ETHAMBUTOL HYDROCHLORIDE [Suspect]
     Indication: TUBERCULOSIS

REACTIONS (1)
  - TUBERCULOMA OF CENTRAL NERVOUS SYSTEM [None]
